FAERS Safety Report 9427713 (Version 1)
Quarter: 2013Q3

REPORT INFORMATION
  Report Type: Spontaneous
  Country: US (occurrence: US)
  Receive Date: 20130730
  Receipt Date: 20130730
  Transmission Date: 20140515
  Serious: No
  Sender: FDA-Public Use
  Company Number: US-ABBOTT-12P-163-0999590-00

PATIENT
  Sex: Female
  Weight: 94.89 kg

DRUGS (10)
  1. NIASPAN (COATED) [Suspect]
     Dates: start: 201210, end: 201210
  2. NIASPAN (COATED) [Suspect]
     Dates: start: 201209, end: 201210
  3. LIPITOR [Concomitant]
     Indication: PRODUCT USED FOR UNKNOWN INDICATION
  4. MICARDIS [Concomitant]
     Indication: PRODUCT USED FOR UNKNOWN INDICATION
  5. INDURAL (NON-ABBOTT) [Concomitant]
     Indication: PRODUCT USED FOR UNKNOWN INDICATION
  6. INSULIN [Concomitant]
     Indication: PRODUCT USED FOR UNKNOWN INDICATION
  7. PROTONIX [Concomitant]
     Indication: GASTROOESOPHAGEAL REFLUX DISEASE
  8. LEVOTHYROXINE [Concomitant]
     Indication: HYPOTHYROIDISM
  9. RESTERIL (NON-ABBOTT) [Concomitant]
     Indication: PRODUCT USED FOR UNKNOWN INDICATION
  10. FLEXERIL [Concomitant]
     Indication: PRODUCT USED FOR UNKNOWN INDICATION

REACTIONS (3)
  - Sunburn [Recovered/Resolved]
  - Chest discomfort [Recovered/Resolved]
  - Pruritus [Not Recovered/Not Resolved]
